FAERS Safety Report 19193132 (Version 1)
Quarter: 2021Q2

REPORT INFORMATION
  Report Type: Spontaneous
  Country: NO (occurrence: NO)
  Receive Date: 20210428
  Receipt Date: 20210428
  Transmission Date: 20210717
  Serious: Yes (Hospitalization, Disabling, Other)
  Sender: FDA-Public Use
  Company Number: NO-009507513-2104NOR006776

PATIENT
  Age: 86 Year
  Sex: Male

DRUGS (12)
  1. BCG?MEDAC [Suspect]
     Active Substance: BACILLUS CALMETTE-GUERIN ANTIGEN, UNSPECIFIED SUBSTRAIN
     Indication: BLADDER CANCER
     Dosage: 5 TREATMENT CYCLES FROM MARCH TO MAY 2020 AND 6 TREATMENT CYCLES FROM DECEMBER 2020 UP TO MID JANUAR
     Route: 043
     Dates: start: 202012, end: 20210112
  2. BCG?MEDAC [Suspect]
     Active Substance: BACILLUS CALMETTE-GUERIN ANTIGEN, UNSPECIFIED SUBSTRAIN
     Dosage: 5 TREATMENT CYCLES FROM MARCH TO MAY 2020 AND 6 TREATMENT CYCLES FROM DECEMBER 2020 UP TO MID JANUAR
     Route: 043
     Dates: start: 20200309, end: 202005
  3. AIROMIR [Concomitant]
     Active Substance: ALBUTEROL SULFATE
     Indication: CHRONIC OBSTRUCTIVE PULMONARY DISEASE
     Dosage: 1 DOSAGE FORM, PRN
     Route: 055
     Dates: start: 2019
  4. VENTOLINE (ALBUTEROL) [Concomitant]
     Active Substance: ALBUTEROL
     Indication: CHRONIC OBSTRUCTIVE PULMONARY DISEASE
     Dosage: 1 MILLILITER, QID
     Route: 055
     Dates: start: 2018
  5. ONCOTICE [Suspect]
     Active Substance: BACILLUS CALMETTE-GUERIN SUBSTRAIN TICE LIVE ANTIGEN
     Dosage: 5 TREATMENT CYCLES FROM MARCH TO MAY 2020 AND 6 TREATMENT CYCLES FROM DECEMBER 2020 UP TO MID JANUAR
     Route: 043
     Dates: start: 20200309, end: 202003
  6. TRIMBOW [Concomitant]
     Active Substance: BECLOMETHASONE DIPROPIONATE\FORMOTEROL FUMARATE\GLYCOPYRROLATE
     Indication: CHRONIC OBSTRUCTIVE PULMONARY DISEASE
     Route: 055
     Dates: start: 2019
  7. ONCOTICE [Suspect]
     Active Substance: BACILLUS CALMETTE-GUERIN SUBSTRAIN TICE LIVE ANTIGEN
     Indication: BLADDER CANCER
     Dosage: UNK
  8. ENALAPRIL SANDOZ [Concomitant]
     Active Substance: ENALAPRIL
     Indication: HYPERTENSION
     Route: 048
     Dates: start: 2017
  9. BUDESONIDE. [Concomitant]
     Active Substance: BUDESONIDE
     Indication: RHINITIS ALLERGIC
     Dosage: 2 DOSES EVERY MORNING
     Route: 045
     Dates: start: 2018
  10. MYLAN ATORVASTATIN [Concomitant]
     Active Substance: ATORVASTATIN CALCIUM
     Dosage: 20 MG ONCE DAILY
     Route: 048
     Dates: start: 2019
  11. PLAVIX [Concomitant]
     Active Substance: CLOPIDOGREL BISULFATE
     Indication: ANTIPLATELET THERAPY
     Dosage: 75 MG 1 TIME PER DAY
     Route: 048
     Dates: start: 2019
  12. MONTELUKAST [Concomitant]
     Active Substance: MONTELUKAST SODIUM
     Indication: ASTHMA
     Route: 048
     Dates: start: 2017

REACTIONS (3)
  - Mycobacterial infection [Unknown]
  - Infection [Unknown]
  - General physical health deterioration [Unknown]

NARRATIVE: CASE EVENT DATE: 202012
